FAERS Safety Report 8027379-6 (Version None)
Quarter: 2012Q1

REPORT INFORMATION
  Report Type: 
  Country: None (occurrence: None)
  Receive Date: 20120104
  Receipt Date: 20111214
  Transmission Date: 20120608
  Serious: Yes (Other)
  Sender: FDA-Public Use
  Company Number: JP-20110043

PATIENT
  Age: 40 Year
  Sex: Female

DRUGS (1)
  1. (LIPIODOL ULTRA FLUIDE) (ETHIODIZED OIL) [Suspect]
     Indication: HYSTEROSALPINGOGRAM
     Dosage: (10 ML), ENDOCERVICAL
     Route: 005

REACTIONS (3)
  - PREGNANCY [None]
  - MATERNAL EXPOSURE BEFORE PREGNANCY [None]
  - CAESAREAN SECTION [None]
